FAERS Safety Report 15731525 (Version 2)
Quarter: 2019Q1

REPORT INFORMATION
  Report Type: Not Available
  Country: US (occurrence: US)
  Receive Date: 20181217
  Receipt Date: 20190208
  Transmission Date: 20190417
  Serious: No
  Sender: FDA-Public Use
  Company Number: US-NEUROCRINE BIOSCIENCES INC.-2018NBI03487

PATIENT
  Sex: Male

DRUGS (6)
  1. INGREZZA [Suspect]
     Active Substance: VALBENAZINE
     Route: 048
     Dates: start: 20181214, end: 20181227
  2. LORATADINE. [Concomitant]
     Active Substance: LORATADINE
     Indication: SEASONAL ALLERGY
  3. AMANTADINE. [Suspect]
     Active Substance: AMANTADINE HYDROCHLORIDE
     Indication: TARDIVE DYSKINESIA
     Dates: end: 20181205
  4. SIMVASTATIN. [Concomitant]
     Active Substance: SIMVASTATIN
     Indication: HYPERLIPIDAEMIA
  5. AMANTADINE. [Suspect]
     Active Substance: AMANTADINE HYDROCHLORIDE
     Dates: start: 20181205, end: 20181208
  6. INGREZZA [Suspect]
     Active Substance: VALBENAZINE
     Indication: TARDIVE DYSKINESIA
     Route: 048
     Dates: start: 20181130, end: 20181205

REACTIONS (3)
  - Drooling [Recovered/Resolved]
  - Tardive dyskinesia [Recovered/Resolved]
  - Drug interaction [Recovered/Resolved]

NARRATIVE: CASE EVENT DATE: 2018
